FAERS Safety Report 9484006 (Version 2)
Quarter: 2013Q3

REPORT INFORMATION
  Report Type: Spontaneous
  Country: CA (occurrence: CA)
  Receive Date: 20130828
  Receipt Date: 20130828
  Transmission Date: 20140515
  Serious: Yes (Other)
  Sender: FDA-Public Use
  Company Number: CA-AMGEN-KDL357117

PATIENT
  Age: 79 Year
  Sex: Female
  Weight: 77.2 kg

DRUGS (5)
  1. ENBREL [Suspect]
     Indication: PSORIASIS
     Dosage: UNK UNK, 2 TIMES/WK
     Route: 065
     Dates: start: 20090706
  2. ATORVASTATIN CALCIUM [Concomitant]
  3. CELECOXIB [Concomitant]
  4. BETAMETHASONE VALERATE [Concomitant]
     Dosage: UNK UNK, UNK
     Route: 061
  5. DIAZEPAM [Concomitant]

REACTIONS (10)
  - Immune system disorder [Unknown]
  - Skin mass [Unknown]
  - Faecal incontinence [Not Recovered/Not Resolved]
  - Wound secretion [Unknown]
  - Injection site pain [Not Recovered/Not Resolved]
  - Kidney infection [Recovering/Resolving]
  - Wound infection [Unknown]
  - Diarrhoea [Not Recovered/Not Resolved]
  - Injection site pain [Not Recovered/Not Resolved]
  - Localised infection [Unknown]
